FAERS Safety Report 5774911-9 (Version None)
Quarter: 2008Q2

REPORT INFORMATION
  Report Type: 
  Country: None (occurrence: None)
  Receive Date: 20080617
  Receipt Date: 20080421
  Transmission Date: 20081010
  Serious: Yes (Hospitalization, Other)
  Sender: FDA-Public Use
  Company Number: BE-ELI_LILLY_AND_COMPANY-BE200712002123

PATIENT
  Sex: Male
  Weight: 69 kg

DRUGS (7)
  1. GEMZAR [Suspect]
     Indication: ADENOCARCINOMA PANCREAS
     Dosage: 1000 MG/M2, UNKNOWN
     Route: 042
     Dates: start: 20070516
  2. LEVOTHYROXINE SODIUM [Concomitant]
     Dosage: UNK, UNKNOWN
     Route: 065
  3. LASIX [Concomitant]
     Dosage: UNK, UNKNOWN
     Route: 065
  4. TORENTAL [Concomitant]
     Dosage: UNK, UNKNOWN
  5. CORDARONE [Concomitant]
     Dosage: UNK, UNKNOWN
  6. TRITACE [Concomitant]
     Dosage: UNK, UNKNOWN
  7. CARDIOASPIRINE [Concomitant]
     Dosage: UNK, UNKNOWN

REACTIONS (2)
  - BRONCHITIS [None]
  - CARDIAC FAILURE [None]
